FAERS Safety Report 16919006 (Version 2)
Quarter: 2020Q1

REPORT INFORMATION
  Report Type: Spontaneous
  Country: US (occurrence: US)
  Receive Date: 20191015
  Receipt Date: 20200103
  Transmission Date: 20200409
  Serious: No
  Sender: FDA-Public Use
  Company Number: US-PFIZER INC-2019442462

PATIENT
  Age: 79 Year
  Sex: Female
  Weight: 57 kg

DRUGS (1)
  1. IBRANCE [Suspect]
     Active Substance: PALBOCICLIB
     Indication: BREAST CANCER METASTATIC
     Dosage: 125 MG, CYCLIC ( DAYS1-21 Q28 DAYS)
     Route: 048
     Dates: start: 20190916, end: 201912

REACTIONS (2)
  - Fatigue [Unknown]
  - Taste disorder [Unknown]

NARRATIVE: CASE EVENT DATE: 2019
